FAERS Safety Report 4318559-1 (Version None)
Quarter: 2004Q1

REPORT INFORMATION
  Report Type: 
  Country: None (occurrence: None)
  Receive Date: 20040318
  Receipt Date: 20040227
  Transmission Date: 20041129
  Serious: Yes (Other)
  Sender: FDA-Public Use
  Company Number: PHEH2004US02498

PATIENT
  Age: 81 Year
  Sex: Female
  Weight: 69 kg

DRUGS (5)
  1. GLEEVEC [Suspect]
     Indication: CHRONIC MYELOID LEUKAEMIA
     Dosage: 400 MG, QD
     Route: 048
     Dates: start: 20020612, end: 20031216
  2. GLEEVEC [Suspect]
     Dosage: 400 MG, BID
     Route: 048
     Dates: start: 20031217, end: 20040121
  3. GLEEVEC [Suspect]
     Dosage: 600 MG, QD
     Route: 048
     Dates: start: 20030710, end: 20031216
  4. AGRYLIN [Concomitant]
     Indication: PLATELET COUNT INCREASED
     Dosage: .5 MG, QID
     Route: 048
     Dates: start: 20031217, end: 20040121
  5. HYDREA [Concomitant]
     Dosage: 1 G, BID
     Route: 048
     Dates: start: 20040121

REACTIONS (4)
  - ABDOMINAL DISCOMFORT [None]
  - DIARRHOEA [None]
  - PLATELET COUNT INCREASED [None]
  - RASH [None]
